FAERS Safety Report 20127152 (Version 5)
Quarter: 2023Q2

REPORT INFORMATION
  Report Type: Spontaneous
  Country: US (occurrence: US)
  Receive Date: 20211129
  Receipt Date: 20230425
  Transmission Date: 20230722
  Serious: No
  Sender: FDA-Public Use
  Company Number: US-SANOFI-00866748

PATIENT
  Age: 66 Year
  Sex: Female

DRUGS (3)
  1. LANTUS SOLOSTAR [Suspect]
     Active Substance: INSULIN GLARGINE
     Indication: Diabetes mellitus
     Dosage: 20 IU, QD
     Route: 065
  2. LANTUS SOLOSTAR [Suspect]
     Active Substance: INSULIN GLARGINE
     Dosage: 30 IU, QD
     Route: 065
  3. LANTUS SOLOSTAR [Suspect]
     Active Substance: INSULIN GLARGINE
     Dosage: 45 IU, QD
     Route: 065

REACTIONS (7)
  - Stress [Unknown]
  - Respiratory syncytial virus infection [Unknown]
  - Bronchial hyperreactivity [Unknown]
  - Renal disorder [Unknown]
  - Renal surgery [Unknown]
  - Blood glucose increased [Recovering/Resolving]
  - Blood glucose abnormal [Unknown]

NARRATIVE: CASE EVENT DATE: 20210628
